FAERS Safety Report 24200665 (Version 1)
Quarter: 2024Q3

REPORT INFORMATION
  Report Type: Spontaneous
  Country: US (occurrence: US)
  Receive Date: 20240812
  Receipt Date: 20240812
  Transmission Date: 20241017
  Serious: Yes (Hospitalization)
  Sender: ANI
  Company Number: US-ANIPHARMA-2024-US-040224

PATIENT
  Age: 60 Year
  Sex: Female

DRUGS (35)
  1. CORTICOTROPIN [Suspect]
     Active Substance: CORTICOTROPIN
     Indication: Polymyositis
     Dosage: 1 ML TWO TIMES PER WEEK
     Route: 058
  2. SYMBICORT [Concomitant]
     Active Substance: BUDESONIDE\FORMOTEROL FUMARATE DIHYDRATE
  3. PROBIOTICS NOS [Concomitant]
     Active Substance: PROBIOTICS NOS
  4. NOVOLOG [Concomitant]
     Active Substance: INSULIN ASPART
  5. FLECAINIDE ACETATE [Concomitant]
     Active Substance: FLECAINIDE ACETATE
  6. ELIQUIS [Concomitant]
     Active Substance: APIXABAN
  7. CARVEDILOL [Concomitant]
     Active Substance: CARVEDILOL
  8. FUROSEMIDE [Concomitant]
     Active Substance: FUROSEMIDE
  9. POTASSIUM CHLORIDE [Concomitant]
     Active Substance: POTASSIUM CHLORIDE
  10. HYDROCORTISONE [Concomitant]
     Active Substance: HYDROCORTISONE\HYDROCORTISONE ACETATE
  11. IPRATROPIUM BROMIDE [Concomitant]
     Active Substance: IPRATROPIUM BROMIDE\IPRATROPIUM BROMIDE ANHYDROUS
  12. DULCOLAX CHEWY FRUIT BITE [Concomitant]
  13. FERROUS GLUCONATE [Concomitant]
     Active Substance: FERROUS GLUCONATE
  14. SUPER B-COMPLEX [Concomitant]
  15. TIGER BALM EXTRA STRENGTH [Concomitant]
  16. BIOFREEZE [Concomitant]
     Active Substance: MENTHOL
  17. SPIRIVA [Concomitant]
     Active Substance: TIOTROPIUM BROMIDE MONOHYDRATE
  18. LEVOCETIRIZINE DIHYDROCHL [Concomitant]
  19. EZETIMIBE [Concomitant]
     Active Substance: EZETIMIBE
  20. ZINC [Concomitant]
     Active Substance: ZINC
  21. CAMPHOTREX [Concomitant]
     Active Substance: CAMPHOR (SYNTHETIC)\MENTHOL
  22. DEXLANSOPRAZOLE [Concomitant]
     Active Substance: DEXLANSOPRAZOLE
  23. TYLENOL EXTRA STRENGTH [Concomitant]
     Active Substance: ACETAMINOPHEN
  24. ALBUTEROL [Concomitant]
     Active Substance: ALBUTEROL
  25. DICLOFENAC SODIUM [Concomitant]
     Active Substance: DICLOFENAC\DICLOFENAC SODIUM
  26. MUPIROCIN [Concomitant]
     Active Substance: MUPIROCIN
  27. LACTULOSE [Concomitant]
     Active Substance: LACTULOSE
  28. MONTELUKAST SODIUM [Concomitant]
     Active Substance: MONTELUKAST SODIUM
  29. BENZONATATE [Concomitant]
     Active Substance: BENZONATATE
  30. VITAMIN C [Concomitant]
     Active Substance: ASCORBIC ACID
  31. VITAMIN D3 [Concomitant]
     Active Substance: CHOLECALCIFEROL
  32. PROMETHAZINE HYDROCHLORIDE [Concomitant]
     Active Substance: PROMETHAZINE HYDROCHLORIDE
  33. BUTALBITAL/ACETAMINOPHEN/ [Concomitant]
  34. CLOBETASOL PROPIONATE [Concomitant]
     Active Substance: CLOBETASOL PROPIONATE
  35. REFRESH-PM [Concomitant]

REACTIONS (2)
  - Product dose omission issue [Recovered/Resolved]
  - Upper respiratory tract infection [Unknown]

NARRATIVE: CASE EVENT DATE: 20240722
